FAERS Safety Report 14261613 (Version 1)
Quarter: 2017Q4

REPORT INFORMATION
  Report Type: Spontaneous
  Country: US (occurrence: US)
  Receive Date: 20171208
  Receipt Date: 20171208
  Transmission Date: 20180321
  Serious: Yes (Other)
  Sender: FDA-Public Use
  Company Number: None

PATIENT
  Age: 38 Year
  Sex: Female
  Weight: 90 kg

DRUGS (5)
  1. CIPRO HC [Suspect]
     Active Substance: CIPROFLOXACIN HYDROCHLORIDE\HYDROCORTISONE
     Indication: EAR PAIN
     Route: 001
     Dates: start: 20140701
  2. MAGNESIUM [Concomitant]
     Active Substance: MAGNESIUM
  3. CIPRO HC [Suspect]
     Active Substance: CIPROFLOXACIN HYDROCHLORIDE\HYDROCORTISONE
     Indication: OTITIS EXTERNA
     Route: 001
     Dates: start: 20140701
  4. VITAMIN D [Concomitant]
     Active Substance: CHOLECALCIFEROL
  5. EAR TUBE [Concomitant]

REACTIONS (9)
  - Ear pain [None]
  - Back pain [None]
  - Headache [None]
  - Musculoskeletal disorder [None]
  - Hypersensitivity [None]
  - Neck pain [None]
  - Ear discomfort [None]
  - Vertigo [None]
  - Eustachian tube dysfunction [None]

NARRATIVE: CASE EVENT DATE: 20140701
